FAERS Safety Report 7829810-5 (Version None)
Quarter: 2011Q4

REPORT INFORMATION
  Report Type: 
  Country: None (occurrence: None)
  Receive Date: 20111020
  Receipt Date: 20111020
  Transmission Date: 20120403
  Serious: Yes (Life-Threatening, Hospitalization, Disabling, Other)
  Sender: FDA-Public Use
  Company Number: None

PATIENT
  Age: 81 Year
  Sex: Female
  Weight: 58.0604 kg

DRUGS (1)
  1. INTERFERON - INTRON A - PEN SCHERING PLOUGH-MERCK [Suspect]
     Indication: RENAL CANCER
     Dosage: 3 X 3X WK 3 TIMES WK EXTERNAL 3 MIL UNITS  3C WR SUBCLAVIS
     Dates: start: 19990927, end: 20030529

REACTIONS (2)
  - CONFUSIONAL STATE [None]
  - DISORIENTATION [None]
